FAERS Safety Report 4561181-2 (Version None)
Quarter: 2005Q1

REPORT INFORMATION
  Report Type: 
  Country: None (occurrence: None)
  Receive Date: 20050121
  Receipt Date: 20050112
  Transmission Date: 20050727
  Serious: Yes (Hospitalization, Other)
  Sender: FDA-Public Use
  Company Number: USA-2003-0009611

PATIENT
  Age: 34 Year
  Sex: Male
  Weight: 99.8 kg

DRUGS (8)
  1. OXYCONTIN [Suspect]
     Indication: PAIN
     Dosage: SEE IMAGE
     Route: 048
  2. CELEXA [Concomitant]
  3. SEROQUEL [Concomitant]
  4. PERCOCET [Concomitant]
  5. ZOLOFT [Concomitant]
  6. EFFEXOR (VENALFAXINE HYDROCHLORIDE) [Concomitant]
  7. FLEXERIL (CYCLOVENZAPRINE HYDROCHLORIDE) [Concomitant]
  8. NEURONTIN [Concomitant]

REACTIONS (47)
  - ABDOMINAL DISCOMFORT [None]
  - ABDOMINAL HERNIA [None]
  - ABDOMINAL PAIN LOWER [None]
  - ACCIDENT AT WORK [None]
  - ANHEDONIA [None]
  - ANXIETY [None]
  - ARTHRALGIA [None]
  - ASTHENIA [None]
  - BACK PAIN [None]
  - BREAST PAIN [None]
  - BREAST SWELLING [None]
  - CHEST DISCOMFORT [None]
  - CHEST PAIN [None]
  - CHILLS [None]
  - CONSTIPATION [None]
  - CRYING [None]
  - DEPRESSION [None]
  - DIARRHOEA [None]
  - DISTURBANCE IN ATTENTION [None]
  - DRUG ABUSER [None]
  - DRUG DEPENDENCE [None]
  - DRUG EFFECT DECREASED [None]
  - DRUG INEFFECTIVE [None]
  - DRUG TOLERANCE [None]
  - DRUG WITHDRAWAL SYNDROME [None]
  - DYSPNOEA [None]
  - ERECTILE DYSFUNCTION [None]
  - GASTROOESOPHAGEAL REFLUX DISEASE [None]
  - HYPERHIDROSIS [None]
  - HYPERTROPHY BREAST [None]
  - HYPOAESTHESIA [None]
  - INADEQUATE ANALGESIA [None]
  - INCISION SITE COMPLICATION [None]
  - INSOMNIA [None]
  - IRRITABILITY [None]
  - MALAISE [None]
  - MASTITIS [None]
  - MUSCLE SPASMS [None]
  - OEDEMA PERIPHERAL [None]
  - PAIN [None]
  - PAIN IN EXTREMITY [None]
  - PANIC ATTACK [None]
  - PYREXIA [None]
  - SELF-MEDICATION [None]
  - STRESS [None]
  - TACHYCARDIA [None]
  - WEIGHT INCREASED [None]
